FAERS Safety Report 20953982 (Version 2)
Quarter: 2022Q3

REPORT INFORMATION
  Report Type: Spontaneous
  Country: BR (occurrence: BR)
  Receive Date: 20220614
  Receipt Date: 20220703
  Transmission Date: 20221027
  Serious: Yes (Death, Other)
  Sender: FDA-Public Use
  Company Number: BR-BRISTOL-MYERS SQUIBB COMPANY-2022-053962

PATIENT
  Age: 78 Year
  Sex: Female

DRUGS (3)
  1. REVLIMID [Suspect]
     Active Substance: LENALIDOMIDE
     Indication: Product used for unknown indication
     Dosage: DOSE : UNAVAILABLE;     FREQ : UNAVAILABLE
     Route: 065
  2. ACYCLOVIR [Concomitant]
     Active Substance: ACYCLOVIR
     Indication: Prophylaxis
     Route: 048
     Dates: start: 20200514, end: 20210903
  3. SULFAMETHOXAZOLE;TRIMIPRAMINE [Concomitant]
     Indication: Prophylaxis
     Dosage: 400 MG/ 80MG
     Dates: start: 20200514, end: 20210903

REACTIONS (1)
  - Death [Fatal]
